FAERS Safety Report 10263522 (Version 2)
Quarter: 2014Q3

REPORT INFORMATION
  Report Type: Report from Study
  Country: US (occurrence: US)
  Receive Date: 20140626
  Receipt Date: 20140709
  Transmission Date: 20150326
  Serious: Yes (Death, Hospitalization)
  Sender: FDA-Public Use
  Company Number: US-ACTELION-A-NJ2014-100710

PATIENT
  Age: 71 Year
  Sex: Female

DRUGS (1)
  1. MACITENTAN [Suspect]
     Active Substance: MACITENTAN
     Indication: PULMONARY ARTERIAL HYPERTENSION
     Dosage: UNK
     Route: 048
     Dates: start: 20140321, end: 20140611

REACTIONS (5)
  - Plasma cell myeloma [Fatal]
  - Hypoxia [Unknown]
  - Acute respiratory distress syndrome [Fatal]
  - Cerebrovascular accident [Fatal]
  - Multi-organ failure [Unknown]

NARRATIVE: CASE EVENT DATE: 20140321
